FAERS Safety Report 8939985 (Version 1)
Quarter: 2012Q4

REPORT INFORMATION
  Report Type: 
  Country: US (occurrence: US)
  Receive Date: 20121121
  Receipt Date: 20121121
  Transmission Date: 20130627
  Serious: Yes (Death, Other)
  Sender: FDA-Public Use
  Company Number: US-ASTELLAS-1096069

PATIENT
  Sex: Female

DRUGS (3)
  1. AVASTIN [Suspect]
     Indication: MALIGNANT URINARY TRACT NEOPLASM
     Route: 065
  2. TARCEVA [Suspect]
     Indication: MALIGNANT URINARY TRACT NEOPLASM
     Route: 065
  3. INTERFERON ALFA-2A [Suspect]
     Indication: MALIGNANT URINARY TRACT NEOPLASM
     Route: 065
     Dates: start: 20050106, end: 20050315

REACTIONS (2)
  - Death [Fatal]
  - Disease progression [Unknown]
